FAERS Safety Report 7181164-6 (Version None)
Quarter: 2010Q4

REPORT INFORMATION
  Report Type: 
  Country: None (occurrence: None)
  Receive Date: 20101221
  Receipt Date: 20101210
  Transmission Date: 20110411
  Serious: Yes (Hospitalization)
  Sender: FDA-Public Use
  Company Number: FR-GENENTECH-311257

PATIENT
  Sex: Female

DRUGS (6)
  1. MABTHERA [Suspect]
     Indication: ANTISYNTHETASE SYNDROME
     Dosage: 1 G, UNK
     Route: 042
     Dates: end: 20091101
  2. CELLCEPT [Suspect]
     Indication: ANTISYNTHETASE SYNDROME
     Dosage: UNK
     Route: 048
     Dates: start: 20081001, end: 20090401
  3. METHOTREXATE [Suspect]
     Indication: ANTISYNTHETASE SYNDROME
     Dosage: UNK
     Route: 048
     Dates: start: 20090401, end: 20091001
  4. ENDOXAN [Suspect]
     Indication: ANTISYNTHETASE SYNDROME
     Dosage: UNK
     Route: 042
     Dates: start: 20080301, end: 20080801
  5. IMUREL [Concomitant]
     Indication: ANTISYNTHETASE SYNDROME
     Dosage: UNK
     Route: 048
     Dates: start: 20100804
  6. RIMIFON [Concomitant]
     Indication: PRODUCT USED FOR UNKNOWN INDICATION
     Dosage: UNK
     Dates: start: 20080101

REACTIONS (1)
  - TUBERCULOSIS [None]
